FAERS Safety Report 25905490 (Version 1)
Quarter: 2025Q4

REPORT INFORMATION
  Report Type: Spontaneous
  Country: US (occurrence: US)
  Receive Date: 20251010
  Receipt Date: 20251010
  Transmission Date: 20260118
  Serious: No
  Sender: CIPLA
  Company Number: US-CIPLA LTD.-2025US12270

PATIENT

DRUGS (3)
  1. ALBUTEROL [Suspect]
     Active Substance: ALBUTEROL
     Indication: Dyspnoea
     Dosage: 180 MICROGRAM, UNK (2 PUFFS EVERY 4 HOURS/6-8 PUFFS A DAY)
     Route: 065
     Dates: start: 202507
  2. ALBUTEROL [Suspect]
     Active Substance: ALBUTEROL
     Indication: Wheezing
     Dosage: 180 MICROGRAM, UNK (INHALER 1) (2 PUFFS EVERY 4 HOURS/6-8 PUFFS A DAY)
     Route: 065
     Dates: start: 202509
  3. ALBUTEROL [Suspect]
     Active Substance: ALBUTEROL
     Dosage: 180 MICROGRAM, UNK (INHALER 2) (2 PUFFS EVERY 4 HOURS/6-8 PUFFS A DAY)
     Route: 065
     Dates: start: 202509

REACTIONS (4)
  - Drug dose omission by device [Unknown]
  - Device delivery system issue [Unknown]
  - Product storage error [Unknown]
  - Product quality issue [Unknown]

NARRATIVE: CASE EVENT DATE: 20250901
